FAERS Safety Report 4699261-3 (Version None)
Quarter: 2005Q2

REPORT INFORMATION
  Report Type: 
  Country: None (occurrence: None)
  Receive Date: 20050624
  Receipt Date: 20050520
  Transmission Date: 20051028
  Serious: Yes (Hospitalization)
  Sender: FDA-Public Use
  Company Number: US-MERCK-0505USA02564

PATIENT
  Age: 78 Year
  Sex: Male
  Weight: 78 kg

DRUGS (6)
  1. VIOXX [Suspect]
     Indication: OSTEOARTHRITIS
     Route: 048
     Dates: start: 20021101, end: 20041001
  2. VIOXX [Suspect]
     Route: 048
     Dates: start: 20030523
  3. VIOXX [Suspect]
     Route: 048
     Dates: start: 20040101
  4. VIAGRA [Concomitant]
     Route: 065
  5. VITAMINS (UNSPECIFIED) [Concomitant]
     Route: 065
  6. TAGAMET [Concomitant]
     Route: 065

REACTIONS (5)
  - BRADYCARDIA [None]
  - CEREBROVASCULAR ACCIDENT [None]
  - ELECTROCARDIOGRAM ABNORMAL [None]
  - GLUCOSE TOLERANCE IMPAIRED [None]
  - HYPERTENSION [None]
